FAERS Safety Report 6442964-0 (Version None)
Quarter: 2009Q4

REPORT INFORMATION
  Report Type: 
  Country: None (occurrence: None)
  Receive Date: 20091117
  Receipt Date: 20091030
  Transmission Date: 20100525
  Serious: Yes (Hospitalization)
  Sender: FDA-Public Use
  Company Number: US-SANOFI-AVENTIS-D01200905870

PATIENT
  Sex: Male
  Weight: 93.2 kg

DRUGS (7)
  1. BLINDED THERAPY [Suspect]
     Indication: PULMONARY EMBOLISM
     Dosage: 3 MG OF 1/WEEK SC SSR126517 + PLACEBO WARFARIN VERSUS PLACEBO SSR126517 + ORAL INR-ADJUSTED WARFARIN
     Dates: start: 20090923
  2. ENOXAPARIN SODIUM [Suspect]
     Indication: PULMONARY EMBOLISM
     Route: 058
     Dates: start: 20090918
  3. ZESTRIL [Concomitant]
     Indication: HYPERTENSION
     Dosage: 5 MG
     Route: 065
     Dates: start: 20090919
  4. TRICOR [Concomitant]
     Dosage: 200 MG
     Route: 065
     Dates: start: 20090801
  5. METFORMIN HCL [Concomitant]
     Indication: TYPE 2 DIABETES MELLITUS
     Dosage: 500 MG
     Route: 065
     Dates: start: 20020101
  6. AVANDIA [Concomitant]
     Indication: TYPE 2 DIABETES MELLITUS
     Dosage: 4 MG
     Route: 065
     Dates: start: 20020101
  7. FENOFIBRATE [Concomitant]
     Dosage: 5 MG
     Route: 065
     Dates: start: 20090919

REACTIONS (1)
  - PAIN IN EXTREMITY [None]
